FAERS Safety Report 11930485 (Version 1)
Quarter: 2016Q1

REPORT INFORMATION
  Report Type: Spontaneous
  Country: US (occurrence: US)
  Receive Date: 20160120
  Receipt Date: 20160120
  Transmission Date: 20160526
  Serious: No
  Sender: FDA-Public Use
  Company Number: US-SHIRE-US201600473

PATIENT
  Age: 22 Year
  Sex: Female

DRUGS (3)
  1. PENTASA [Suspect]
     Active Substance: MESALAMINE
     Indication: PRODUCT USED FOR UNKNOWN INDICATION
     Dosage: 1 G, OTHER (INTERMITTENT)
     Route: 048
  2. PENTASA [Suspect]
     Active Substance: MESALAMINE
     Dosage: 2 G, 1X/DAY:QD
     Route: 048
  3. PREDNISONE. [Concomitant]
     Active Substance: PREDNISONE
     Indication: PRODUCT USED FOR UNKNOWN INDICATION
     Dosage: UNK, UNKNOWN
     Route: 065

REACTIONS (2)
  - Hypoaesthesia [Unknown]
  - Drug dose omission [Unknown]
